FAERS Safety Report 5531404-1 (Version None)
Quarter: 2007Q4

REPORT INFORMATION
  Report Type: 
  Country: None (occurrence: None)
  Receive Date: 20071203
  Receipt Date: 20071127
  Transmission Date: 20080405
  Serious: Yes (Hospitalization)
  Sender: FDA-Public Use
  Company Number: AU-BRISTOL-MYERS SQUIBB COMPANY-14000145

PATIENT
  Age: 85 Year
  Sex: Female

DRUGS (2)
  1. CARBIDOPA + LEVODOPA [Suspect]
     Dosage: 1 DOSAGE FORM = 100/25MG
     Route: 048
     Dates: start: 20050101, end: 20071123
  2. SELEGILINE HCL [Concomitant]

REACTIONS (3)
  - FALL [None]
  - FRACTURE [None]
  - NAUSEA [None]
